FAERS Safety Report 18945542 (Version 3)
Quarter: 2021Q1

REPORT INFORMATION
  Report Type: Report from Study
  Country: IT (occurrence: IT)
  Receive Date: 20210226
  Receipt Date: 20210326
  Transmission Date: 20210420
  Serious: Yes (Death, Hospitalization)
  Sender: FDA-Public Use
  Company Number: IT-EMD SERONO-9084715

PATIENT
  Age: 79 Year
  Sex: Male
  Weight: 66 kg

DRUGS (2)
  1. OXYCONTIN [Concomitant]
     Active Substance: OXYCODONE HYDROCHLORIDE
     Indication: NECK PAIN
     Route: 048
     Dates: start: 20190130
  2. C?MET KINASE INHIBITOR (MSC2156119J) [Suspect]
     Active Substance: TEPOTINIB
     Indication: NON-SMALL CELL LUNG CANCER
     Route: 048
     Dates: start: 20190319, end: 20190408

REACTIONS (1)
  - Acute respiratory failure [Fatal]

NARRATIVE: CASE EVENT DATE: 20190408
